FAERS Safety Report 4977292-3 (Version None)
Quarter: 2006Q2

REPORT INFORMATION
  Report Type: 
  Country: None (occurrence: None)
  Receive Date: 20060419
  Receipt Date: 20060405
  Transmission Date: 20061013
  Serious: Yes (Hospitalization)
  Sender: FDA-Public Use
  Company Number: KR-MERCK-0604KOR00009

PATIENT
  Sex: Female

DRUGS (2)
  1. FOSAMAX [Suspect]
     Indication: OSTEOPOROSIS
     Route: 048
     Dates: start: 20050723, end: 20050813
  2. FOSAMAX [Suspect]
     Route: 048
     Dates: start: 20051001, end: 20051201

REACTIONS (1)
  - HOSPITALISATION [None]
